FAERS Safety Report 5922476-0 (Version None)
Quarter: 2008Q3

REPORT INFORMATION
  Report Type: 
  Country: None (occurrence: None)
  Receive Date: 20080909
  Receipt Date: 20070720
  Transmission Date: 20090109
  Serious: Yes (Disabling)
  Sender: FDA-Public Use
  Company Number: 163-20785-03040306

PATIENT
  Age: 64 Year
  Sex: Female

DRUGS (9)
  1. THALOMID [Suspect]
     Indication: MULTIPLE MYELOMA
     Dosage: 50 MG, 1 IN 1 D, ORAL : 200 MG, DAILY, ORAL : 150 MG, DAILY, ORAL : 100 MG, DAILY, ORAL
     Route: 048
     Dates: start: 20020115, end: 20020129
  2. THALOMID [Suspect]
     Indication: MULTIPLE MYELOMA
     Dosage: 50 MG, 1 IN 1 D, ORAL : 200 MG, DAILY, ORAL : 150 MG, DAILY, ORAL : 100 MG, DAILY, ORAL
     Route: 048
     Dates: start: 20020130, end: 20030101
  3. THALOMID [Suspect]
     Indication: MULTIPLE MYELOMA
     Dosage: 50 MG, 1 IN 1 D, ORAL : 200 MG, DAILY, ORAL : 150 MG, DAILY, ORAL : 100 MG, DAILY, ORAL
     Route: 048
     Dates: start: 20030201, end: 20030411
  4. THALOMID [Suspect]
     Indication: MULTIPLE MYELOMA
     Dosage: 50 MG, 1 IN 1 D, ORAL : 200 MG, DAILY, ORAL : 150 MG, DAILY, ORAL : 100 MG, DAILY, ORAL
     Route: 048
     Dates: start: 20030412
  5. THALOMID [Suspect]
     Indication: MULTIPLE MYELOMA
     Dosage: 50 MG, 1 IN 1 D, ORAL : 200 MG, DAILY, ORAL : 150 MG, DAILY, ORAL : 100 MG, DAILY, ORAL
     Route: 048
     Dates: start: 20041110
  6. DEXAMETHASONE TAB [Concomitant]
  7. VALTREX [Concomitant]
  8. NORVASC [Concomitant]
  9. INNOHEP [Concomitant]

REACTIONS (9)
  - BENCE JONES PROTEIN URINE PRESENT [None]
  - CONJUNCTIVAL HAEMORRHAGE [None]
  - DISEASE PROGRESSION [None]
  - DIZZINESS [None]
  - GAIT DISTURBANCE [None]
  - HYPOAESTHESIA [None]
  - PARAESTHESIA [None]
  - PROTEINURIA [None]
  - PSYCHOMOTOR HYPERACTIVITY [None]
